FAERS Safety Report 17932848 (Version 1)
Quarter: 2020Q2

REPORT INFORMATION
  Report Type: Spontaneous
  Country: US (occurrence: US)
  Receive Date: 20200623
  Receipt Date: 20200623
  Transmission Date: 20200714
  Serious: No
  Sender: FDA-Public Use
  Company Number: US-GILEAD-2020-0473788

PATIENT
  Age: 58 Year
  Sex: Female

DRUGS (1)
  1. BIKTARVY [Suspect]
     Active Substance: BICTEGRAVIR SODIUM\EMTRICITABINE\TENOFOVIR ALAFENAMIDE FUMARATE
     Indication: HIV INFECTION
     Dosage: UNK
     Route: 048
     Dates: start: 202001

REACTIONS (7)
  - Initial insomnia [Unknown]
  - Weight increased [Unknown]
  - Middle insomnia [Unknown]
  - Depression [Unknown]
  - Product dispensing error [Unknown]
  - Diarrhoea [Not Recovered/Not Resolved]
  - Faeces discoloured [Unknown]
